FAERS Safety Report 6425280-2 (Version None)
Quarter: 2009Q4

REPORT INFORMATION
  Report Type: 
  Country: None (occurrence: None)
  Receive Date: 20091102
  Receipt Date: 20091102
  Transmission Date: 20100525
  Serious: Yes (Other)
  Sender: FDA-Public Use
  Company Number: None

PATIENT
  Sex: Female
  Weight: 79.3795 kg

DRUGS (2)
  1. PEG-INTRON [Suspect]
     Indication: HEPATITIS C
     Dosage: 120MCG/0.5ML WEEKLY SQ
     Route: 058
     Dates: start: 20091022
  2. RIBAVIRIN [Suspect]
     Indication: HEPATITIS C
     Dosage: 200 MG CAP 84 2 PO AM/ 3 PO PM
     Route: 048
     Dates: start: 20091022

REACTIONS (6)
  - ABDOMINAL PAIN [None]
  - ANXIETY [None]
  - BRUXISM [None]
  - LABILE BLOOD PRESSURE [None]
  - PAIN IN JAW [None]
  - TENSION [None]
